FAERS Safety Report 13292417 (Version 1)
Quarter: 2017Q1

REPORT INFORMATION
  Report Type: Spontaneous
  Country: AT (occurrence: AT)
  Receive Date: 20170303
  Receipt Date: 20170303
  Transmission Date: 20170428
  Serious: Yes (Other)
  Sender: FDA-Public Use
  Company Number: AT-ASTRAZENECA-2017SE21182

PATIENT
  Age: 24 Year
  Sex: Male
  Weight: 83 kg

DRUGS (1)
  1. ZOMIG [Suspect]
     Active Substance: ZOLMITRIPTAN
     Indication: MIGRAINE
     Dosage: 2.5MG UNKNOWN
     Route: 048
     Dates: start: 201506

REACTIONS (3)
  - General physical health deterioration [Recovered/Resolved]
  - Disorientation [Recovered/Resolved]
  - Partial seizures [Recovered/Resolved]

NARRATIVE: CASE EVENT DATE: 201506
